FAERS Safety Report 7319488-1 (Version None)
Quarter: 2011Q1

REPORT INFORMATION
  Report Type: 
  Country: None (occurrence: None)
  Receive Date: 20110228
  Receipt Date: 20100415
  Transmission Date: 20110831
  Serious: Yes (Other)
  Sender: FDA-Public Use
  Company Number: A0855234A

PATIENT
  Age: 19 Year
  Sex: Female
  Weight: 68.2 kg

DRUGS (6)
  1. MELATONIN [Concomitant]
     Indication: SLEEP DISORDER
     Route: 048
  2. YAZ [Concomitant]
     Route: 048
  3. LAMICTAL [Suspect]
     Indication: BIPOLAR DISORDER
     Dosage: 25MG PER DAY
     Route: 048
     Dates: start: 20100409, end: 20100413
  4. FISH OIL [Concomitant]
     Route: 048
  5. FOLIC ACID [Concomitant]
     Route: 048
  6. VITAMIN B6 [Concomitant]
     Route: 048

REACTIONS (3)
  - PRURITUS [None]
  - ERYTHEMA [None]
  - RASH VESICULAR [None]
